FAERS Safety Report 5132171-6 (Version None)
Quarter: 2006Q4

REPORT INFORMATION
  Report Type: 
  Country: None (occurrence: None)
  Receive Date: 20061017
  Receipt Date: 20061003
  Transmission Date: 20070319
  Serious: Yes (Hospitalization, Other)
  Sender: FDA-Public Use
  Company Number: US200610000742

PATIENT
  Age: 53 Year
  Sex: Female

DRUGS (2)
  1. HUMALOG [Suspect]
     Indication: DIABETES MELLITUS
     Dates: start: 20010101
  2. PROCRIT [Concomitant]

REACTIONS (13)
  - ABSCESS LIMB [None]
  - ANAEMIA [None]
  - BLINDNESS [None]
  - BLISTER [None]
  - BLOOD GLUCOSE DECREASED [None]
  - CATARACT [None]
  - EYE DISORDER [None]
  - ILEUS [None]
  - LOSS OF CONSCIOUSNESS [None]
  - PHARMACEUTICAL PRODUCT COMPLAINT [None]
  - RENAL DISORDER [None]
  - STAPHYLOCOCCAL INFECTION [None]
  - TOE AMPUTATION [None]
